FAERS Safety Report 19922616 (Version 1)
Quarter: 2021Q4

REPORT INFORMATION
  Report Type: Spontaneous
  Country: US (occurrence: US)
  Receive Date: 20211006
  Receipt Date: 20211006
  Transmission Date: 20220303
  Serious: Yes (Life-Threatening, Hospitalization, Other)
  Sender: FDA-Public Use
  Company Number: US-SUN PHARMACEUTICAL INDUSTRIES LTD-2021R1-313337

PATIENT
  Age: 12 Year
  Sex: Male

DRUGS (1)
  1. BACLOFEN [Suspect]
     Active Substance: BACLOFEN
     Indication: Product used for unknown indication
     Dosage: 12000 MICROGRAM UNK
     Route: 065

REACTIONS (5)
  - Toxicity to various agents [Unknown]
  - Coma [Recovered/Resolved]
  - Accidental overdose [Unknown]
  - Mental status changes [Recovered/Resolved]
  - Seizure [Unknown]
